FAERS Safety Report 8599319-2 (Version None)
Quarter: 2012Q3

REPORT INFORMATION
  Report Type: 
  Country: None (occurrence: None)
  Receive Date: 20120816
  Receipt Date: 20120809
  Transmission Date: 20120928
  Serious: Yes (Other)
  Sender: FDA-Public Use
  Company Number: AU-JNJFOC-20120805019

PATIENT
  Sex: Male

DRUGS (10)
  1. STELARA [Suspect]
     Route: 058
     Dates: start: 20110322
  2. STELARA [Suspect]
     Route: 058
     Dates: start: 20101208
  3. STELARA [Suspect]
     Route: 058
     Dates: start: 20120413
  4. STELARA [Suspect]
     Indication: PRODUCT USED FOR UNKNOWN INDICATION
     Route: 058
     Dates: start: 20111028
  5. STELARA [Suspect]
     Route: 058
     Dates: start: 20110913
  6. STELARA [Suspect]
     Route: 058
     Dates: start: 20101228
  7. STELARA [Suspect]
     Route: 058
     Dates: start: 20111223
  8. STELARA [Suspect]
     Route: 058
     Dates: start: 20110621
  9. STELARA [Suspect]
     Route: 058
     Dates: start: 20120711
  10. STELARA [Suspect]
     Route: 058
     Dates: start: 20111206

REACTIONS (1)
  - TYPE 2 DIABETES MELLITUS [None]
